FAERS Safety Report 9710715 (Version 2)
Quarter: 2013Q4

REPORT INFORMATION
  Report Type: Spontaneous
  Country: US (occurrence: US)
  Receive Date: 20131126
  Receipt Date: 20131126
  Transmission Date: 20140711
  Serious: No
  Sender: FDA-Public Use
  Company Number: US-BRISTOL-MYERS SQUIBB COMPANY-18941286

PATIENT
  Age: 58 Year
  Sex: Female
  Weight: 136.05 kg

DRUGS (3)
  1. BYETTA PEN DISPOSABLE [Suspect]
     Indication: TYPE 2 DIABETES MELLITUS
     Dosage: INITIALLY STARTED WITH 5 MCG BID?12-JUL-2013: DOSE INCREASED TO 10 MCG BID
     Route: 058
     Dates: start: 20130522
  2. SIMVASTATIN [Concomitant]
  3. ASPIRIN [Concomitant]

REACTIONS (23)
  - Palpitations [Recovered/Resolved]
  - Headache [Recovered/Resolved]
  - Diarrhoea [Recovered/Resolved]
  - Nausea [Recovered/Resolved]
  - Decreased appetite [Unknown]
  - Nervousness [Recovered/Resolved]
  - Abdominal discomfort [Recovered/Resolved]
  - Headache [Recovered/Resolved]
  - Feeling jittery [Recovered/Resolved]
  - Weight decreased [Unknown]
  - Insomnia [Unknown]
  - Urticaria [Unknown]
  - Injection site pain [Unknown]
  - Pain [Unknown]
  - Local swelling [Recovered/Resolved]
  - Feeling abnormal [Not Recovered/Not Resolved]
  - Blood glucose increased [Not Recovered/Not Resolved]
  - Blood glucose fluctuation [Unknown]
  - Fatigue [Unknown]
  - Muscle spasms [Unknown]
  - Abdominal pain upper [Unknown]
  - Stress [Unknown]
  - Constipation [Unknown]
